FAERS Safety Report 6215610-9 (Version None)
Quarter: 2009Q2

REPORT INFORMATION
  Report Type: 
  Country: None (occurrence: None)
  Receive Date: 20090605
  Receipt Date: 20090529
  Transmission Date: 20091009
  Serious: Yes (Hospitalization)
  Sender: FDA-Public Use
  Company Number: DE-TEVA-196770ISR

PATIENT
  Age: 70 Year
  Sex: Female
  Weight: 62 kg

DRUGS (6)
  1. RAMIPRIL [Suspect]
     Indication: HYPERTENSION
     Route: 048
     Dates: start: 20090415
  2. TRIMIPRAMINE MALEATE [Suspect]
     Indication: DEPRESSION
     Route: 048
  3. PRITOR [Suspect]
     Indication: HYPERTENSION
     Route: 048
  4. TRAMADOL HCL [Suspect]
     Indication: PAIN
     Route: 048
     Dates: start: 19990101
  5. METOPROLOL SUCCINATE [Suspect]
     Indication: HYPERTENSION
     Route: 048
  6. PANTOPRAZOLE SODIUM [Suspect]
     Indication: REFLUX OESOPHAGITIS
     Route: 048

REACTIONS (2)
  - HYPERTENSIVE CRISIS [None]
  - HYPONATRAEMIA [None]
